FAERS Safety Report 4328065-6 (Version None)
Quarter: 2004Q1

REPORT INFORMATION
  Report Type: 
  Country: None (occurrence: None)
  Receive Date: 20040325
  Receipt Date: 20040315
  Transmission Date: 20041129
  Serious: Yes (Other)
  Sender: FDA-Public Use
  Company Number: 200410084BSV

PATIENT
  Age: 33 Year
  Sex: Female
  Weight: 70 kg

DRUGS (3)
  1. CANESTEN CREAM (CLOTRIMAZOLE) [Suspect]
     Indication: VAGINAL MYCOSIS
     Dosage: BID, VAGINAL
     Route: 067
     Dates: start: 20040208, end: 20040210
  2. CANESTEN CREAM (CLOTRIMAZOLE) [Suspect]
     Indication: VAGINAL MYCOSIS
     Dosage: BID, VAGINAL
     Route: 067
     Dates: start: 20040217, end: 20040219
  3. NUVARING [Suspect]
     Indication: CONTRACEPTION
     Dosage: Q3WK, VAGINAL
     Route: 067
     Dates: start: 20030923

REACTIONS (1)
  - DEVICE INTERACTION [None]
